FAERS Safety Report 4303676-2 (Version None)
Quarter: 2004Q1

REPORT INFORMATION
  Report Type: 
  Country: None (occurrence: None)
  Receive Date: 20040223
  Receipt Date: 20040206
  Transmission Date: 20041129
  Serious: Yes (Hospitalization)
  Sender: FDA-Public Use
  Company Number: 200400351

PATIENT
  Age: 64 Year
  Sex: Female
  Weight: 68.0396 kg

DRUGS (6)
  1. BOTOX [Suspect]
     Indication: MIGRAINE
     Dosage: 300 UNITS PRN IM
     Route: 030
     Dates: start: 20040106
  2. BOTOX [Suspect]
     Indication: TORTICOLLIS
     Dosage: 300 UNITS PRN IM
     Route: 030
     Dates: start: 20040106
  3. NEXIUM [Concomitant]
  4. EVISTA [Concomitant]
  5. MYSOLINE [Concomitant]
  6. ZOMIG [Concomitant]

REACTIONS (22)
  - ASTHENIA [None]
  - BLOOD MAGNESIUM DECREASED [None]
  - BLOOD POTASSIUM DECREASED [None]
  - BLOOD PRESSURE DECREASED [None]
  - BOTULISM [None]
  - CHILLS [None]
  - CYSTITIS [None]
  - DEHYDRATION [None]
  - DIZZINESS [None]
  - DYSPHAGIA [None]
  - EYELID PTOSIS [None]
  - FEELING ABNORMAL [None]
  - HEADACHE [None]
  - HEPATIC ENZYME INCREASED [None]
  - IMPAIRED WORK ABILITY [None]
  - MOVEMENT DISORDER [None]
  - NAUSEA [None]
  - PYREXIA [None]
  - SOMNOLENCE [None]
  - TREATMENT NONCOMPLIANCE [None]
  - TREMOR [None]
  - URTICARIA [None]
